FAERS Safety Report 19685996 (Version 1)
Quarter: 2021Q3

REPORT INFORMATION
  Report Type: Spontaneous
  Country: FR (occurrence: FR)
  Receive Date: 20210811
  Receipt Date: 20210811
  Transmission Date: 20211014
  Serious: Yes (Hospitalization)
  Sender: FDA-Public Use
  Company Number: FR-ORGANON-O2108FRA000347

PATIENT
  Age: 65 Year
  Sex: Female
  Weight: 60 kg

DRUGS (13)
  1. KYPROLIS [Suspect]
     Active Substance: CARFILZOMIB
     Indication: PLASMA CELL MYELOMA
     Dosage: DAY1, DAY2 AND DAY 8 AND DAY 9, FORMULATION REPORTED AS POWER FOR SOLUTION FOR IV DRIP
     Route: 041
     Dates: start: 20210118, end: 20210323
  2. KYPROLIS [Suspect]
     Active Substance: CARFILZOMIB
     Indication: CRYOGLOBULINAEMIA
  3. FOLINIC ACID [Suspect]
     Active Substance: LEUCOVORIN
     Indication: VITAMIN SUPPLEMENTATION
     Dosage: 5 MILLIGRAM, QD
     Route: 048
  4. SERESTA [Suspect]
     Active Substance: OXAZEPAM
     Indication: ANXIETY
     Dosage: 80 MILLIGRAM, QD
     Route: 048
  5. HYDROCORTISONE ACEPONATE [Suspect]
     Active Substance: HYDROCORTISONE ACEPONATE
     Indication: SECONDARY ADRENOCORTICAL INSUFFICIENCY
     Dosage: 30 MILLIGRAM, QD
     Route: 048
  6. TRIMETHOPRIME [Suspect]
     Active Substance: TRIMETHOPRIM
     Indication: OPPORTUNISTIC INFECTION PROPHYLAXIS
     Dosage: 160 MILLIGRAM, QW
     Route: 048
  7. SULFAMETHOXAZOLE [Suspect]
     Active Substance: SULFAMETHOXAZOLE
     Indication: OPPORTUNISTIC INFECTION PROPHYLAXIS
     Dosage: 800 MILLIGRAM, QW
     Route: 048
  8. DEXAMETHASONE ACETATE [Suspect]
     Active Substance: DEXAMETHASONE ACETATE
     Indication: PLASMA CELL MYELOMA
     Dosage: UNK
     Route: 041
     Dates: start: 20210118, end: 202103
  9. DEXAMETHASONE ACETATE [Suspect]
     Active Substance: DEXAMETHASONE ACETATE
     Indication: CRYOGLOBULINAEMIA
  10. DARZALEX [Suspect]
     Active Substance: DARATUMUMAB
     Indication: CRYOGLOBULINAEMIA
     Dosage: 1800 MILLIGRAM, QOW
     Route: 058
     Dates: start: 20210413
  11. MIRTAZAPINE. [Suspect]
     Active Substance: MIRTAZAPINE
     Indication: DEPRESSION
     Dosage: 30 MILLIGRAM, QD
     Route: 048
  12. OXYCODONE HYDROCHLORIDE. [Suspect]
     Active Substance: OXYCODONE HYDROCHLORIDE
     Indication: PAIN
     Dosage: 140 MILLIGRAM, QD
     Route: 048
  13. DARZALEX [Suspect]
     Active Substance: DARATUMUMAB
     Indication: PLASMA CELL MYELOMA
     Dosage: 920 MILLIGRAM, QW
     Route: 041
     Dates: start: 20210210

REACTIONS (1)
  - Uveitis [Not Recovered/Not Resolved]

NARRATIVE: CASE EVENT DATE: 202104
